FAERS Safety Report 7275622-3 (Version None)
Quarter: 2011Q1

REPORT INFORMATION
  Report Type: 
  Country: None (occurrence: None)
  Receive Date: 20110204
  Receipt Date: 20110125
  Transmission Date: 20110831
  Serious: Yes (Other)
  Sender: FDA-Public Use
  Company Number: US-JNJFOC-20101000596

PATIENT
  Sex: Female
  Weight: 82.56 kg

DRUGS (5)
  1. REMICADE [Suspect]
     Route: 042
  2. MTX [Concomitant]
     Indication: RHEUMATOID ARTHRITIS
  3. REMICADE [Suspect]
     Indication: RHEUMATOID ARTHRITIS
     Route: 042
  4. REMICADE [Suspect]
     Route: 042
  5. PLAQUENIL [Concomitant]
     Indication: RHEUMATOID ARTHRITIS

REACTIONS (6)
  - URTICARIA [None]
  - CHILLS [None]
  - HYPERSENSITIVITY [None]
  - TREMOR [None]
  - LOSS OF CONSCIOUSNESS [None]
  - INFUSION RELATED REACTION [None]
